FAERS Safety Report 14591613 (Version 1)
Quarter: 2018Q1

REPORT INFORMATION
  Report Type: Spontaneous
  Country: US (occurrence: US)
  Receive Date: 20180302
  Receipt Date: 20180302
  Transmission Date: 20180509
  Serious: No
  Sender: FDA-Public Use
  Company Number: US-SHIRE-US201807993

PATIENT
  Age: 50 Year
  Sex: Female

DRUGS (1)
  1. VYVANSE [Suspect]
     Active Substance: LISDEXAMFETAMINE DIMESYLATE
     Indication: ATTENTION DEFICIT/HYPERACTIVITY DISORDER
     Dosage: 70 MG, 1X/DAY:QD
     Route: 048

REACTIONS (5)
  - Drug ineffective [Unknown]
  - Nervousness [Unknown]
  - Feeling abnormal [Unknown]
  - Prescribed overdose [Unknown]
  - Depression [Unknown]
